FAERS Safety Report 5268440-9 (Version None)
Quarter: 2007Q1

REPORT INFORMATION
  Report Type: 
  Country: None (occurrence: None)
  Receive Date: 20070319
  Receipt Date: 20070308
  Transmission Date: 20070707
  Serious: Yes (Disabling)
  Sender: FDA-Public Use
  Company Number: GB-GLAXOSMITHKLINE-B0462213A

PATIENT
  Age: 42 Year
  Sex: Male
  Weight: 62 kg

DRUGS (1)
  1. ATOVAQUONE [Suspect]
     Indication: PROPHYLAXIS
     Dosage: 10MG TWICE PER DAY
     Route: 048
     Dates: start: 20070126

REACTIONS (1)
  - FATIGUE [None]
